FAERS Safety Report 9741411 (Version 1)
Quarter: 2013Q4

REPORT INFORMATION
  Report Type: Spontaneous
  Country: FR (occurrence: FR)
  Receive Date: 20131209
  Receipt Date: 20131209
  Transmission Date: 20140711
  Serious: Yes (Hospitalization, Disabling)
  Sender: FDA-Public Use
  Company Number: PHHY2013FR142121

PATIENT
  Age: 76 Year
  Sex: Male

DRUGS (10)
  1. EXJADE [Suspect]
     Indication: MYELODYSPLASTIC SYNDROME
     Dosage: 1 G, QD
     Route: 048
     Dates: start: 20121212
  2. EXJADE [Suspect]
     Dosage: 1.5 G, QD
     Route: 048
     Dates: start: 201302
  3. EXJADE [Suspect]
     Dosage: 2 DF, BID (2G QD)
     Route: 048
     Dates: start: 201305, end: 20130824
  4. COUMADINE [Concomitant]
  5. TAHOR [Concomitant]
  6. SERESTA [Concomitant]
  7. ACEBUTOLOL [Concomitant]
  8. FUROSEMIDE [Concomitant]
  9. RABEPRAZOLE [Concomitant]
  10. DAFALGAN [Concomitant]

REACTIONS (4)
  - Renal tubular necrosis [Not Recovered/Not Resolved]
  - Nephrolithiasis [Not Recovered/Not Resolved]
  - Hepatitis [Recovered/Resolved]
  - Renal failure acute [Not Recovered/Not Resolved]
